FAERS Safety Report 4587069-9 (Version None)
Quarter: 2005Q1

REPORT INFORMATION
  Report Type: 
  Country: None (occurrence: None)
  Receive Date: 20050214
  Receipt Date: 20050131
  Transmission Date: 20050727
  Serious: Yes (Death)
  Sender: FDA-Public Use
  Company Number: 20050100004

PATIENT
  Age: 43 Year
  Sex: Female
  Weight: 105 kg

DRUGS (13)
  1. SUPRANE [Suspect]
     Indication: ANAESTHESIA
     Dosage: 3 % IH
     Route: 055
     Dates: start: 20050104, end: 20050104
  2. OXYGEN [Concomitant]
  3. FENTANYL [Concomitant]
  4. PROPOFOL [Concomitant]
  5. VECURONIUM [Concomitant]
  6. DIAZEPAM [Concomitant]
  7. CEFAZOLIN [Concomitant]
  8. RANITIDINE [Concomitant]
  9. METPHORMINE CHLORIDE [Concomitant]
  10. GLIBENCLAMIDE [Concomitant]
  11. PERINDOPRIL [Concomitant]
  12. FUROSEMIDE [Concomitant]
  13. CETIRIZINE HCL [Concomitant]

REACTIONS (8)
  - ACIDOSIS [None]
  - ANURIA [None]
  - CARDIAC ARREST [None]
  - HAEMODYNAMIC INSTABILITY [None]
  - HYPERCALCAEMIA [None]
  - HYPERTHERMIA MALIGNANT [None]
  - POST PROCEDURAL COMPLICATION [None]
  - TACHYCARDIA [None]
